FAERS Safety Report 5781018-3 (Version None)
Quarter: 2008Q2

REPORT INFORMATION
  Report Type: 
  Country: None (occurrence: None)
  Receive Date: 20080620
  Receipt Date: 20080610
  Transmission Date: 20081010
  Serious: Yes (Hospitalization, Other)
  Sender: FDA-Public Use
  Company Number: US-PFIZER INC-2008048978

PATIENT
  Sex: Female
  Weight: 68 kg

DRUGS (7)
  1. CALAN [Suspect]
     Indication: BLOOD PRESSURE
     Route: 048
  2. CATAPRES [Concomitant]
  3. AMARYL [Concomitant]
     Indication: DIABETES MELLITUS
  4. BENICAR [Concomitant]
  5. ASPIRIN [Concomitant]
  6. POTASSIUM CHLORIDE [Concomitant]
  7. NEXIUM [Concomitant]

REACTIONS (3)
  - DIARRHOEA [None]
  - SLEEP DISORDER [None]
  - STOMACH DISCOMFORT [None]
